FAERS Safety Report 13797386 (Version 4)
Quarter: 2017Q3

REPORT INFORMATION
  Report Type: Spontaneous
  Country: CN (occurrence: HK)
  Receive Date: 20170727
  Receipt Date: 20170822
  Transmission Date: 20171127
  Serious: Yes (Other)
  Sender: FDA-Public Use
  Company Number: HK-009507513-1707HKG010607

PATIENT
  Age: 64 Year
  Sex: Female

DRUGS (1)
  1. KEYTRUDA [Suspect]
     Active Substance: PEMBROLIZUMAB
     Indication: GASTRIC CANCER
     Dosage: UNK, ADD 150-200CC NORMAL SALINE, IV INFUSION FOR HALD HOUR, EVERY THREE WEEKS
     Route: 042
     Dates: start: 201706

REACTIONS (4)
  - Product quality issue [Unknown]
  - Product use in unapproved indication [Unknown]
  - Carcinoembryonic antigen increased [Not Recovered/Not Resolved]
  - Drug ineffective [Unknown]

NARRATIVE: CASE EVENT DATE: 201706
